FAERS Safety Report 10908300 (Version 1)
Quarter: 2015Q1

REPORT INFORMATION
  Report Type: Spontaneous
  Country: US (occurrence: None)
  Receive Date: 20150309
  Receipt Date: 20150309
  Transmission Date: 20150721
  Serious: No
  Sender: FDA-Public Use
  Company Number: None

PATIENT
  Age: 42 Year
  Sex: Male
  Weight: 81.19 kg

DRUGS (8)
  1. VITAMIN D [Concomitant]
     Active Substance: CHOLECALCIFEROL
  2. CITRICAL [Concomitant]
     Active Substance: CALCIUM CITRATE
  3. SIMVASTITIN [Concomitant]
  4. COUMADIN [Concomitant]
     Active Substance: WARFARIN SODIUM
  5. C-PAP MACHINE [Concomitant]
     Active Substance: DEVICE
  6. ANDROGEL [Suspect]
     Active Substance: TESTOSTERONE
     Indication: PRIMARY HYPOGONADISM
     Dosage: ONCE DAILY, APPLIED TO A SURFACE, USUALLY THE SKIN
  7. CIALIS [Concomitant]
     Active Substance: TADALAFIL
  8. ANDROGEL [Suspect]
     Active Substance: TESTOSTERONE
     Indication: KLINEFELTER^S SYNDROME
     Dosage: ONCE DAILY, APPLIED TO A SURFACE, USUALLY THE SKIN

REACTIONS (7)
  - Benign prostatic hyperplasia [None]
  - Post procedural haemorrhage [None]
  - Lower urinary tract symptoms [None]
  - Haemorrhoids [None]
  - Prostatic specific antigen increased [None]
  - Post procedural complication [None]
  - Sleep apnoea syndrome [None]
